FAERS Safety Report 19171911 (Version 3)
Quarter: 2021Q3

REPORT INFORMATION
  Report Type: Report from Study
  Country: US (occurrence: US)
  Receive Date: 20210423
  Receipt Date: 20210722
  Transmission Date: 20211014
  Serious: Yes (Hospitalization, Other)
  Sender: FDA-Public Use
  Company Number: US-BRISTOL-MYERS SQUIBB COMPANY-BMS-2021-037735

PATIENT
  Age: 68 Year
  Sex: Male
  Weight: 72.57 kg

DRUGS (2)
  1. ELIQUIS [Suspect]
     Active Substance: APIXABAN
     Indication: PRODUCT USED FOR UNKNOWN INDICATION
     Dosage: 5 MILLIGRAM, BID
     Route: 048
  2. ABATACEPT [Suspect]
     Active Substance: ABATACEPT
     Indication: RHEUMATOID ARTHRITIS
     Dosage: 125 MILLIGRAM, QWK
     Route: 058

REACTIONS (7)
  - Haematoma [Unknown]
  - Impaired gastric emptying [Unknown]
  - Device leakage [Unknown]
  - Fatigue [Unknown]
  - Contusion [Unknown]
  - Haemorrhage [Unknown]
  - Condition aggravated [Unknown]
